FAERS Safety Report 5826881-2 (Version None)
Quarter: 2008Q3

REPORT INFORMATION
  Report Type: 
  Country: None (occurrence: None)
  Receive Date: 20080725
  Receipt Date: 20080716
  Transmission Date: 20090109
  Serious: Yes (Death, Life-Threatening, Other)
  Sender: FDA-Public Use
  Company Number: 2008US001375

PATIENT
  Age: 73 Year
  Sex: Male
  Weight: 63.6 kg

DRUGS (14)
  1. AMBISOME [Suspect]
     Indication: FEBRILE NEUTROPENIA
     Dosage: 150 MG, UID/QD, IV NOS
     Route: 042
     Dates: start: 20080322, end: 20080331
  2. ACETAMINOPHEN [Suspect]
     Indication: DRUG USE FOR UNKNOWN INDICATION
     Dosage: 60 MG, UID, QD, ORAL
     Route: 048
     Dates: start: 20080319, end: 20080329
  3. LOXONIN (LOXOPROFEN SODIUM) [Suspect]
     Indication: DRUG USE FOR UNKNOWN INDICATION
     Dosage: 60 MG,  UID/QD, ORAL
     Route: 048
     Dates: start: 20080327, end: 20080331
  4. MEROPEN(MEROPENEM) [Suspect]
     Indication: DRUG USE FOR UNKNOWN INDICATION
     Dosage: 2 G, UID/QD, DR
     Dates: start: 20080322, end: 20080402
  5. RED BLOOD CELLS [Concomitant]
  6. GASTER D [Concomitant]
  7. BACTRIM [Concomitant]
  8. SOLDEM 3A (SODIUM LACTATE, POTASSIUM CHLORIDE, CARBOHYDRATES NOS, SODI [Concomitant]
  9. MAXIPIME [Concomitant]
  10. ISOTONIC SODIUM SOLUTION [Concomitant]
  11. CLEITON (HYDROCORTISONE SODIUM PHOSPHATE) [Concomitant]
  12. PLATELETS [Concomitant]
  13. PN TWIN (AMINO ACIDS NOS, ELECTROLYTES NOS, CARBOHYDRATES NOS) [Concomitant]
  14. MUCOSOLVAN (AMBROXOLHYDROCHLORIDE) [Concomitant]

REACTIONS (8)
  - ANAEMIA [None]
  - BLOOD CREATININE INCREASED [None]
  - BLOOD UREA INCREASED [None]
  - BLOOD URINE PRESENT [None]
  - CONDITION AGGRAVATED [None]
  - GENERAL PHYSICAL HEALTH DETERIORATION [None]
  - PROTEIN URINE PRESENT [None]
  - SEPSIS [None]
